FAERS Safety Report 12334022 (Version 1)
Quarter: 2016Q2

REPORT INFORMATION
  Report Type: Spontaneous
  Country: US (occurrence: US)
  Receive Date: 20160504
  Receipt Date: 20160504
  Transmission Date: 20160815
  Serious: No
  Sender: FDA-Public Use
  Company Number: US-ROCHE-1695184

PATIENT
  Sex: Female

DRUGS (1)
  1. ESBRIET [Suspect]
     Active Substance: PIRFENIDONE
     Indication: IDIOPATHIC PULMONARY FIBROSIS
     Route: 065

REACTIONS (6)
  - Nausea [Unknown]
  - Drug ineffective [Unknown]
  - Anxiety [Unknown]
  - Dyspnoea [Unknown]
  - Emotional distress [Unknown]
  - Eating disorder [Unknown]
